FAERS Safety Report 9287990 (Version 4)
Quarter: 2014Q2

REPORT INFORMATION
  Report Type: Spontaneous
  Country: US (occurrence: US)
  Receive Date: 20130514
  Receipt Date: 20140510
  Transmission Date: 20141212
  Serious: Yes (Death, Hospitalization, Other)
  Sender: FDA-Public Use
  Company Number: US201212004058

PATIENT
  Age: 71 Year
  Sex: Male

DRUGS (16)
  1. BYETTA PEN DISPOSABLE [Suspect]
     Indication: DIABETES MELLITUS
     Dosage: 0.04 ML
     Route: 058
     Dates: start: 20090623, end: 200911
  2. ALBUTEROL [Concomitant]
  3. AMIODARONE [Concomitant]
  4. ASPIRIN [Concomitant]
  5. PROCRIT [Concomitant]
  6. HEPARIN [Concomitant]
  7. INSULIN [Concomitant]
  8. GLIPIZIDE [Concomitant]
  9. TRICOR [Concomitant]
     Route: 048
  10. LASIX [Concomitant]
     Dosage: TAB
     Dates: start: 20090507
  11. VYTORIN [Concomitant]
     Dosage: 1DF-10-40MG?TAB
     Dates: start: 20080424
  12. AVANDAMET [Concomitant]
  13. LISINOPRIL [Concomitant]
  14. ZOLPIDEM [Concomitant]
  15. MULTIVITAMIN [Concomitant]
  16. TYLENOL [Concomitant]

REACTIONS (7)
  - Renal failure acute [Fatal]
  - Septic shock [Fatal]
  - Respiratory failure [Fatal]
  - Pancreatitis [Unknown]
  - Cognitive disorder [Unknown]
  - Peripheral ischaemia [Unknown]
  - Drug intolerance [Unknown]
